FAERS Safety Report 7693943-7 (Version None)
Quarter: 2011Q3

REPORT INFORMATION
  Report Type: 
  Country: None (occurrence: None)
  Receive Date: 20110819
  Receipt Date: 20110810
  Transmission Date: 20111222
  Serious: Yes (Hospitalization)
  Sender: FDA-Public Use
  Company Number: US-EISAI INC-E7273-00247-CLI-US

PATIENT
  Sex: Male
  Weight: 89 kg

DRUGS (11)
  1. TARGRETIN [Suspect]
     Route: 048
     Dates: start: 20110325, end: 20110730
  2. METFORMIN HCL [Concomitant]
     Route: 048
     Dates: start: 20040101
  3. GABAPENTIN [Concomitant]
     Route: 048
     Dates: start: 20100601
  4. GLIMEPIRIDE [Concomitant]
     Route: 048
     Dates: start: 20020101
  5. LEVOTHYROXINE SODIUM [Concomitant]
     Route: 048
     Dates: start: 20110405
  6. FLOMAX [Concomitant]
     Route: 048
     Dates: start: 20100601
  7. FISH OIL [Concomitant]
     Route: 048
     Dates: start: 20110707
  8. SIMVASTATIN [Concomitant]
     Route: 048
     Dates: start: 20020101
  9. BENICAR [Concomitant]
     Route: 048
     Dates: start: 20050101
  10. TRICOR [Concomitant]
     Route: 048
     Dates: start: 20110301
  11. NIACIN [Concomitant]
     Route: 048
     Dates: start: 20110429

REACTIONS (3)
  - RENAL FAILURE [None]
  - SYNCOPE [None]
  - HYPOTHYROIDISM [None]
